FAERS Safety Report 4443489-4 (Version None)
Quarter: 2004Q3

REPORT INFORMATION
  Report Type: 
  Country: None (occurrence: None)
  Receive Date: 20040903
  Receipt Date: 20040903
  Transmission Date: 20050211
  Serious: Yes (Death)
  Sender: FDA-Public Use
  Company Number: None

PATIENT
  Age: 78 Year
  Sex: Male
  Weight: 84.369 kg

DRUGS (19)
  1. ZOSYN [Suspect]
     Indication: PNEUMONIA
     Dosage: 3.375G OTO INTRAVENOUS
     Route: 042
     Dates: start: 20040816, end: 20040816
  2. ACETAMINOPHEN [Concomitant]
  3. ATROVENT [Concomitant]
  4. ADVAIR DISKUS 100/50 [Concomitant]
  5. SINGULAIR [Concomitant]
  6. ALBUTEROL [Concomitant]
  7. XALATAN [Concomitant]
  8. ECONAZOLE NITRATE [Concomitant]
  9. AQUAPHOR [Concomitant]
  10. HUMIBID [Concomitant]
  11. ALLEGRA-D [Concomitant]
  12. ATIVAN [Concomitant]
  13. LASIX [Concomitant]
  14. FLUMAZENIL [Concomitant]
  15. CIPRO [Concomitant]
  16. ZOSYN [Concomitant]
  17. ETOMIDATE [Concomitant]
  18. SUCCINYCHOLINE [Concomitant]
  19. OMNIPAQUE 240 [Concomitant]

REACTIONS (4)
  - CARDIO-RESPIRATORY ARREST [None]
  - DRUG HYPERSENSITIVITY [None]
  - HYPOTENSION [None]
  - SEPTIC SHOCK [None]
